FAERS Safety Report 9332121 (Version 2)
Quarter: 2013Q3

REPORT INFORMATION
  Report Type: Spontaneous
  Country: US (occurrence: US)
  Receive Date: 20130606
  Receipt Date: 20130723
  Transmission Date: 20140515
  Serious: Yes (Hospitalization, Other)
  Sender: FDA-Public Use
  Company Number: US-AMGEN-USASP2013039149

PATIENT
  Age: 51 Year
  Sex: Female
  Weight: 72.11 kg

DRUGS (2)
  1. ENBREL [Suspect]
     Indication: RHEUMATOID ARTHRITIS
     Dosage: 25 MG, 2 TIMES/WK
     Route: 058
     Dates: start: 2003, end: 20130513
  2. METHOTREXATE [Concomitant]
     Dosage: 20 MG, QWK
     Route: 048
     Dates: start: 2003, end: 20120828

REACTIONS (14)
  - Blood sodium decreased [Recovered/Resolved]
  - Pneumothorax [Not Recovered/Not Resolved]
  - Small cell lung cancer [Not Recovered/Not Resolved]
  - Liver function test abnormal [Recovered/Resolved]
  - Nausea [Not Recovered/Not Resolved]
  - Vomiting [Not Recovered/Not Resolved]
  - Headache [Not Recovered/Not Resolved]
  - Mental status changes [Recovered/Resolved]
  - Hypertension [Unknown]
  - Stress [Unknown]
  - Painful respiration [Not Recovered/Not Resolved]
  - Aspartate aminotransferase increased [Recovered/Resolved]
  - Alanine aminotransferase increased [Recovered/Resolved]
  - Injection site pain [Recovered/Resolved]
